FAERS Safety Report 6727797-X (Version None)
Quarter: 2010Q2

REPORT INFORMATION
  Report Type: 
  Country: None (occurrence: None)
  Receive Date: 20100517
  Receipt Date: 20100512
  Transmission Date: 20101027
  Serious: Yes (Other)
  Sender: FDA-Public Use
  Company Number: GB-ROCHE-702856

PATIENT
  Age: 7 Year
  Sex: Male

DRUGS (1)
  1. TAMIFLU [Suspect]
     Indication: DRUG USE FOR UNKNOWN INDICATION
     Dosage: ACTIVE CONSTITUENT: OSELTAMIVIR PHOSPHATE, DOSE AND FREQUENCY: NOT REPORTED.
     Route: 048
     Dates: start: 20091119, end: 20091120

REACTIONS (2)
  - DELIRIUM [None]
  - HALLUCINATION, AUDITORY [None]
